FAERS Safety Report 11996273 (Version 2)
Quarter: 2017Q1

REPORT INFORMATION
  Report Type: Spontaneous
  Country: US (occurrence: US)
  Receive Date: 20160203
  Receipt Date: 20170328
  Transmission Date: 20170428
  Serious: Yes (Hospitalization)
  Sender: FDA-Public Use
  Company Number: US-ACTELION-A-NJ2016-130580

PATIENT
  Age: 71 Year
  Sex: Male

DRUGS (14)
  1. OMNARIS [Concomitant]
     Active Substance: CICLESONIDE
  2. DIOVAN [Concomitant]
     Active Substance: VALSARTAN
  3. ADCIRCA [Concomitant]
     Active Substance: TADALAFIL
  4. SPIRONOLACTONE. [Concomitant]
     Active Substance: SPIRONOLACTONE
  5. DILTIAZEM. [Concomitant]
     Active Substance: DILTIAZEM
  6. ALLOPURINOL. [Concomitant]
     Active Substance: ALLOPURINOL
  7. OMEPRAZOLE. [Concomitant]
     Active Substance: OMEPRAZOLE
  8. TYVASO [Concomitant]
     Active Substance: TREPROSTINIL
  9. COUMADIN [Concomitant]
     Active Substance: WARFARIN SODIUM
  10. METOPROLOL. [Concomitant]
     Active Substance: METOPROLOL
  11. OPSUMIT [Suspect]
     Active Substance: MACITENTAN
     Indication: PULMONARY ARTERIAL HYPERTENSION
     Dosage: 10 MG, QD
     Route: 048
     Dates: start: 20140311
  12. BUMETANIDE. [Concomitant]
     Active Substance: BUMETANIDE
  13. ALVESCO [Concomitant]
     Active Substance: CICLESONIDE
  14. XOPENEX HFA [Concomitant]
     Active Substance: LEVALBUTEROL TARTRATE

REACTIONS (6)
  - Haemorrhage [Unknown]
  - Loss of consciousness [Recovered/Resolved]
  - Dysgeusia [Recovered/Resolved]
  - Transfusion [Unknown]
  - Laceration [Recovering/Resolving]
  - Pulmonary arterial pressure abnormal [Recovering/Resolving]

NARRATIVE: CASE EVENT DATE: 20160114
